FAERS Safety Report 7906984-9 (Version None)
Quarter: 2011Q4

REPORT INFORMATION
  Report Type: 
  Country: None (occurrence: None)
  Receive Date: 20111109
  Receipt Date: 20111109
  Transmission Date: 20120403
  Serious: Yes (Life-Threatening, Hospitalization, Disabling, Other)
  Sender: FDA-Public Use
  Company Number: None

PATIENT
  Age: 83 Year
  Sex: Female
  Weight: 63.5036 kg

DRUGS (1)
  1. FORTEO [Suspect]
     Indication: OSTEOPOROSIS
     Dosage: 20 MCG DOSE PRESET PEN 1X DAILY INJECTION SUBCUTANEOUS
     Route: 058
     Dates: start: 20110401, end: 20110928

REACTIONS (3)
  - EVANS SYNDROME [None]
  - HAEMOLYTIC ANAEMIA [None]
  - THROMBOCYTOPENIC PURPURA [None]
